FAERS Safety Report 14171437 (Version 3)
Quarter: 2018Q1

REPORT INFORMATION
  Report Type: Spontaneous
  Country: US (occurrence: US)
  Receive Date: 20171108
  Receipt Date: 20180102
  Transmission Date: 20180508
  Serious: Yes (Other)
  Sender: FDA-Public Use
  Company Number: US-TEVA-824074USA

PATIENT
  Sex: Female

DRUGS (2)
  1. ESTRADIOL. [Suspect]
     Active Substance: ESTRADIOL
  2. ESTRADIOL. [Suspect]
     Active Substance: ESTRADIOL

REACTIONS (4)
  - Uterine cervical erosion [Unknown]
  - Product packaging issue [Unknown]
  - Cervix haemorrhage uterine [Unknown]
  - Product physical issue [Unknown]
